FAERS Safety Report 20356726 (Version 1)
Quarter: 2022Q1

REPORT INFORMATION
  Report Type: Report from Study
  Country: US (occurrence: US)
  Receive Date: 20220120
  Receipt Date: 20220120
  Transmission Date: 20220423
  Serious: Yes (Hospitalization)
  Sender: FDA-Public Use
  Company Number: US-IGSA-BIG0017282

PATIENT
  Age: 58 Year
  Sex: Male

DRUGS (1)
  1. GAMUNEX-C [Suspect]
     Active Substance: HUMAN IMMUNOGLOBULIN G
     Indication: Demyelinating polyneuropathy
     Dosage: 135 GRAM, Q.4WK.
     Route: 042
     Dates: start: 20211201

REACTIONS (6)
  - Gastrointestinal haemorrhage [Unknown]
  - Retinal vein occlusion [Unknown]
  - Pulmonary embolism [Unknown]
  - Seizure [Unknown]
  - Atrial flutter [Unknown]
  - Sinus tachycardia [Unknown]

NARRATIVE: CASE EVENT DATE: 20211201
